FAERS Safety Report 19698467 (Version 1)
Quarter: 2021Q3

REPORT INFORMATION
  Report Type: Spontaneous
  Country: US (occurrence: US)
  Receive Date: 20210813
  Receipt Date: 20210813
  Transmission Date: 20211014
  Serious: No
  Sender: FDA-Public Use
  Company Number: US-BAYER-2021-191536

PATIENT
  Age: 31 Year
  Sex: Male
  Weight: 90.72 kg

DRUGS (2)
  1. CLARITIN [Suspect]
     Active Substance: LORATADINE
     Indication: RASH PAPULAR
     Dosage: TWICE
  2. CETAPHIL [SOFT SOAP] [Concomitant]
     Active Substance: SOAP

REACTIONS (1)
  - Drug effective for unapproved indication [None]

NARRATIVE: CASE EVENT DATE: 2021
